FAERS Safety Report 6831993-0 (Version None)
Quarter: 2010Q3

REPORT INFORMATION
  Report Type: 
  Country: None (occurrence: None)
  Receive Date: 20100712
  Receipt Date: 20100630
  Transmission Date: 20110219
  Serious: Yes (Hospitalization, Other)
  Sender: FDA-Public Use
  Company Number: US-PFIZER INC-2010082454

PATIENT
  Sex: Female
  Weight: 11.2 kg

DRUGS (2)
  1. DILANTIN-125 [Suspect]
     Indication: CONVULSION
     Dosage: 1.2 ML, 2X/DAY
     Route: 048
     Dates: start: 19960801, end: 19960901
  2. TEGRETOL [Suspect]
     Indication: CONVULSION
     Dosage: ONE TEASPOON THRICE DAILY
     Route: 048
     Dates: end: 19960901

REACTIONS (11)
  - BLOOD GLUCOSE INCREASED [None]
  - BLOOD PRESSURE SYSTOLIC INCREASED [None]
  - DEAFNESS NEUROSENSORY [None]
  - DEHYDRATION [None]
  - DENTAL CARIES [None]
  - DIARRHOEA [None]
  - HAND-FOOT-AND-MOUTH DISEASE [None]
  - KAWASAKI'S DISEASE [None]
  - OVERWEIGHT [None]
  - SPEECH DISORDER [None]
  - STEVENS-JOHNSON SYNDROME [None]
